FAERS Safety Report 4868060-1 (Version None)
Quarter: 2005Q4

REPORT INFORMATION
  Report Type: 
  Country: None (occurrence: None)
  Receive Date: 20051221
  Receipt Date: 20051212
  Transmission Date: 20060501
  Serious: Yes (Hospitalization)
  Sender: FDA-Public Use
  Company Number: 2005-12-0124

PATIENT

DRUGS (4)
  1. INTRON A [Suspect]
     Indication: METASTATIC RENAL CELL CARCINOMA
     Dosage: SUBCUTANEOUS
     Route: 058
     Dates: end: 20051125
  2. RADIATION THERAPY [Suspect]
     Dosage: X-RAY THERAPY
  3. INTERLEUKIN-2 INJECTABLE [Suspect]
     Indication: METASTATIC RENAL CELL CARCINOMA
     Dosage: SUBCUTANEOUS
     Route: 058
  4. FLUOROURACIL [Suspect]
     Indication: METASTATIC RENAL CELL CARCINOMA
     Dosage: INTRAVENOUS
     Route: 042

REACTIONS (5)
  - BODY TEMPERATURE INCREASED [None]
  - CHILLS [None]
  - CREPITATIONS [None]
  - INFECTION [None]
  - LUNG CONSOLIDATION [None]
